FAERS Safety Report 13671112 (Version 1)
Quarter: 2017Q2

REPORT INFORMATION
  Report Type: Spontaneous
  Country: US (occurrence: US)
  Receive Date: 20170620
  Receipt Date: 20170620
  Transmission Date: 20170830
  Serious: No
  Sender: FDA-Public Use
  Company Number: US-ROCHE-1302709

PATIENT
  Sex: Female

DRUGS (6)
  1. IBUPROFEN. [Concomitant]
     Active Substance: IBUPROFEN
  2. XELODA [Suspect]
     Active Substance: CAPECITABINE
     Dosage: EVENING
     Route: 048
     Dates: start: 20131018
  3. NORCO [Concomitant]
     Active Substance: ACETAMINOPHEN\HYDROCODONE BITARTRATE
  4. ONDANSETRON [Concomitant]
     Active Substance: ONDANSETRON
  5. XELODA [Suspect]
     Active Substance: CAPECITABINE
     Indication: COLON CANCER
     Dosage: 4 IN MORNING, 3 IN EVENING
     Route: 065
     Dates: start: 20131018
  6. XELODA [Suspect]
     Active Substance: CAPECITABINE
     Indication: RECTAL CANCER
     Dosage: MORNING
     Route: 048
     Dates: start: 20131018

REACTIONS (7)
  - Neuropathy peripheral [Unknown]
  - Abasia [Unknown]
  - Constipation [Unknown]
  - Skin discolouration [Not Recovered/Not Resolved]
  - Pain in extremity [Unknown]
  - Erythema [Unknown]
  - Burning sensation [Not Recovered/Not Resolved]
